FAERS Safety Report 8829207 (Version 2)
Quarter: 2013Q2

REPORT INFORMATION
  Report Type: Spontaneous
  Country: US (occurrence: US)
  Receive Date: 20121008
  Receipt Date: 20130422
  Transmission Date: 20140414
  Serious: Yes (Hospitalization, Other)
  Sender: FDA-Public Use
  Company Number: PHHY2012US086163

PATIENT
  Age: 85 Year
  Sex: Female

DRUGS (8)
  1. WARFARIN [Suspect]
     Dosage: 2.5 MG PER DAY
  2. CEFTAROLINE FOSAMIL [Interacting]
     Indication: CELLULITIS
     Route: 042
  3. CARVEDILOL [Concomitant]
     Dosage: 12.5 MG, BID
  4. SIMVASTATIN [Concomitant]
     Dosage: 20 MG AT BED TIME
  5. ASPIRIN [Concomitant]
     Dosage: 81 MG DAILY
  6. ANASTROZOLE [Concomitant]
     Dosage: 1 MG, DAILY
  7. OMEPRAZOLE [Concomitant]
     Dosage: 20 MG, DAILY
  8. VENLAFAXINE [Concomitant]
     Dosage: 37.5 MG DAILY

REACTIONS (4)
  - Haemarthrosis [Recovering/Resolving]
  - Musculoskeletal pain [Recovered/Resolved]
  - International normalised ratio increased [Recovering/Resolving]
  - Drug interaction [Unknown]
